FAERS Safety Report 17452757 (Version 1)
Quarter: 2020Q1

REPORT INFORMATION
  Report Type: Spontaneous
  Country: BR (occurrence: BR)
  Receive Date: 20200224
  Receipt Date: 20200224
  Transmission Date: 20200409
  Serious: Yes (Hospitalization, Other)
  Sender: FDA-Public Use
  Company Number: NVSC2020BR050247

PATIENT
  Age: 57 Year
  Sex: Female
  Weight: 53 kg

DRUGS (7)
  1. INSULIN [Concomitant]
     Active Substance: INSULIN NOS
     Indication: DIABETES MELLITUS
     Dosage: 10 IU, QD
     Route: 058
  2. NPH INSULIN [Concomitant]
     Active Substance: INSULIN BEEF
     Indication: DIABETES MELLITUS
     Dosage: 40 IU IN MORNING AND 30 IU IN NIGHT, BID
     Route: 058
  3. DICLOFENAC SODIUM. [Concomitant]
     Active Substance: DICLOFENAC SODIUM
     Indication: INTERVERTEBRAL DISC PROTRUSION
     Dosage: 1 DF, QD
     Route: 048
  4. COSENTYX [Concomitant]
     Active Substance: SECUKINUMAB
     Indication: PSORIASIS
     Dosage: 2 DF, (2 AMPOULES, ONCE EVERY 15 DAYS)
     Route: 058
     Dates: start: 20181128, end: 201907
  5. SIMVASTATIN. [Concomitant]
     Active Substance: SIMVASTATIN
     Indication: BLOOD CHOLESTEROL INCREASED
     Dosage: 1 DF, QD
     Route: 048
  6. AAS [Concomitant]
     Active Substance: ASPIRIN
     Indication: PRODUCT USED FOR UNKNOWN INDICATION
     Route: 065
  7. CAPTOPRIL. [Suspect]
     Active Substance: CAPTOPRIL
     Indication: HYPERTENSION
     Dosage: 1 DF, QD
     Route: 048
     Dates: end: 20200215

REACTIONS (11)
  - Patella fracture [Unknown]
  - Inflammation [Unknown]
  - Retinal detachment [Unknown]
  - Abdominal discomfort [Unknown]
  - Fall [Unknown]
  - Malaise [Unknown]
  - Tendon rupture [Unknown]
  - Joint injury [Unknown]
  - Tuberculosis [Unknown]
  - Nausea [Unknown]
  - Gait disturbance [Unknown]

NARRATIVE: CASE EVENT DATE: 20191005
